FAERS Safety Report 17911886 (Version 4)
Quarter: 2020Q3

REPORT INFORMATION
  Report Type: Spontaneous
  Country: US (occurrence: US)
  Receive Date: 20200618
  Receipt Date: 20200824
  Transmission Date: 20201103
  Serious: Yes (Death, Hospitalization, Other)
  Sender: FDA-Public Use
  Company Number: US-LEXICON PHARMACEUTICALS, INC-20-1606-00475

PATIENT
  Age: 58 Year
  Sex: Male

DRUGS (1)
  1. XERMELO [Suspect]
     Active Substance: TELOTRISTAT ETHYL
     Indication: CARCINOID SYNDROME
     Dates: start: 20200402

REACTIONS (4)
  - Cystitis [Unknown]
  - Death [Fatal]
  - Terminal state [Fatal]
  - Hypotension [Unknown]
